FAERS Safety Report 23598234 (Version 1)
Quarter: 2024Q1

REPORT INFORMATION
  Report Type: Report from Study
  Country: US (occurrence: US)
  Receive Date: 20240305
  Receipt Date: 20240305
  Transmission Date: 20240409
  Serious: Yes (Hospitalization)
  Sender: FDA-Public Use
  Company Number: US-ABBVIE-5658301

PATIENT
  Age: 64 Year
  Sex: Female
  Weight: 61.234 kg

DRUGS (3)
  1. HUMIRA [Suspect]
     Active Substance: ADALIMUMAB
     Indication: Crohn^s disease
     Dosage: FORM STRENGTH 80 MG
     Route: 058
     Dates: start: 20160707, end: 202401
  2. VITAMIN B12 [Concomitant]
     Active Substance: CYANOCOBALAMIN
     Indication: Product used for unknown indication
  3. VITAMIN D [Concomitant]
     Active Substance: VITAMIN D NOS
     Indication: Product used for unknown indication

REACTIONS (6)
  - Acute kidney injury [Recovered/Resolved]
  - Illness [Unknown]
  - Viral infection [Recovering/Resolving]
  - Dehydration [Unknown]
  - Sinusitis [Unknown]
  - Glaucoma [Unknown]

NARRATIVE: CASE EVENT DATE: 20220309
